FAERS Safety Report 20392312 (Version 2)
Quarter: 2022Q1

REPORT INFORMATION
  Report Type: Spontaneous
  Country: JP (occurrence: JP)
  Receive Date: 20220128
  Receipt Date: 20220221
  Transmission Date: 20220423
  Serious: Yes (Other)
  Sender: FDA-Public Use
  Company Number: JP-DSPHARMA-2022DSP000998

PATIENT

DRUGS (1)
  1. LATUDA [Suspect]
     Active Substance: LURASIDONE HYDROCHLORIDE
     Indication: Schizophrenia
     Dosage: 40 MG, QD
     Route: 048

REACTIONS (1)
  - Schizophrenia [Recovering/Resolving]
